FAERS Safety Report 6794050-8 (Version None)
Quarter: 2010Q2

REPORT INFORMATION
  Report Type: 
  Country: None (occurrence: None)
  Receive Date: 20100624
  Receipt Date: 20090521
  Transmission Date: 20101027
  Serious: Yes (Death, Life-Threatening)
  Sender: FDA-Public Use
  Company Number: JP-PFIZER INC-2009202230

PATIENT
  Sex: Female
  Weight: 43.4 kg

DRUGS (8)
  1. UNASYN [Suspect]
     Indication: URINARY TRACT INFECTION
     Dosage: 3 G, 2X/DAY
     Route: 042
     Dates: start: 20090418, end: 20090419
  2. METILON [Suspect]
     Indication: HYPERTHERMIA
     Dosage: 250 MG, 1X/DAY
     Route: 030
     Dates: start: 20090418, end: 20090504
  3. PROSTARMON F [Concomitant]
     Indication: ILEUS
     Dosage: UNK
     Route: 042
     Dates: start: 20090410, end: 20090416
  4. PANTOSIN [Concomitant]
     Indication: ILEUS
     Dosage: UNK
     Route: 042
     Dates: start: 20090413, end: 20090507
  5. PRIMPERAN TAB [Concomitant]
     Indication: ILEUS
     Dosage: UNK
     Route: 042
     Dates: start: 20090417, end: 20090507
  6. AMLODIN [Concomitant]
     Indication: HYPERTENSION
     Dosage: UNK
     Route: 048
     Dates: start: 20061213, end: 20090410
  7. MAGNESIUM OXIDE [Concomitant]
     Indication: CONSTIPATION
     Dosage: UNK
     Route: 048
     Dates: start: 20070131, end: 20090412
  8. PURSENNID [Concomitant]
     Indication: CONSTIPATION
     Dosage: UNK
     Route: 048
     Dates: start: 20070131, end: 20090412

REACTIONS (2)
  - PLATELET COUNT DECREASED [None]
  - SEPTIC SHOCK [None]
